FAERS Safety Report 18242996 (Version 1)
Quarter: 2020Q3

REPORT INFORMATION
  Report Type: Spontaneous
  Country: US (occurrence: US)
  Receive Date: 20200908
  Receipt Date: 20200908
  Transmission Date: 20201103
  Serious: No
  Sender: FDA-Public Use
  Company Number: None

PATIENT
  Age: 42 Year
  Sex: Male
  Weight: 167.1 kg

DRUGS (1)
  1. REMDESIVIR 100 MG/20 ML VIAL [Suspect]
     Active Substance: REMDESIVIR
     Indication: COVID-19
     Route: 042
     Dates: start: 20200904, end: 20200908

REACTIONS (2)
  - Intercepted product administration error [None]
  - Product dispensing error [None]

NARRATIVE: CASE EVENT DATE: 20200905
